FAERS Safety Report 9510572 (Version 1)
Quarter: 2013Q3

REPORT INFORMATION
  Report Type: Spontaneous
  Country: US (occurrence: US)
  Receive Date: 20130909
  Receipt Date: 20130909
  Transmission Date: 20140515
  Serious: Yes (Other)
  Sender: FDA-Public Use
  Company Number: US-ABBOTT-13P-163-1143679-00

PATIENT
  Sex: Female
  Weight: 121.67 kg

DRUGS (4)
  1. HUMIRA [Suspect]
     Indication: JUVENILE IDIOPATHIC ARTHRITIS
     Dates: start: 2003, end: 2004
  2. HUMIRA [Suspect]
     Dates: start: 2004, end: 201103
  3. HUMIRA [Suspect]
     Dates: start: 201210, end: 201308
  4. CELEBREX [Concomitant]
     Indication: PRODUCT USED FOR UNKNOWN INDICATION

REACTIONS (1)
  - Abortion spontaneous [Unknown]
